FAERS Safety Report 5648385-2 (Version None)
Quarter: 2008Q1

REPORT INFORMATION
  Report Type: 
  Country: None (occurrence: None)
  Receive Date: 20080131
  Receipt Date: 20071129
  Transmission Date: 20080703
  Serious: No
  Sender: FDA-Public Use
  Company Number: 2005PV002670

PATIENT
  Age: 72 Year
  Sex: Male
  Weight: 82.6 kg

DRUGS (25)
  1. BYETTA [Suspect]
     Indication: TYPE 2 DIABETES MELLITUS
     Dosage: 5 , 10 UG, 2/D,  SUBCUTANEOUS
     Route: 058
     Dates: start: 20050926, end: 20050926
  2. BYETTA [Suspect]
     Indication: TYPE 2 DIABETES MELLITUS
     Dosage: 5 , 10 UG, 2/D,  SUBCUTANEOUS
     Route: 058
     Dates: start: 20050927, end: 20060101
  3. BYETTA [Suspect]
     Indication: TYPE 2 DIABETES MELLITUS
     Dosage: 5 , 10 UG, 2/D,  SUBCUTANEOUS
     Route: 058
     Dates: start: 20060521, end: 20060101
  4. BYETTA [Suspect]
     Indication: TYPE 2 DIABETES MELLITUS
     Dosage: 5 , 10 UG, 2/D,  SUBCUTANEOUS
     Route: 058
     Dates: start: 20050101
  5. BYETTA [Suspect]
     Indication: TYPE 2 DIABETES MELLITUS
     Dosage: 5 , 10 UG, 2/D,  SUBCUTANEOUS
     Route: 058
     Dates: start: 20060101
  6. BYETTA [Suspect]
  7. BYETTA [Suspect]
  8. BYETTA [Suspect]
  9. AVANDIA [Concomitant]
  10. GLYBURIDE [Concomitant]
  11. MONPRIL [Concomitant]
  12. AVAPRO [Concomitant]
  13. LIPITOR [Concomitant]
  14. VYTORIN [Concomitant]
  15. ASPIRIN [Concomitant]
  16. ANGIOTENSIN RECEPTOR BLOCKER [Concomitant]
  17. HYDROCHLOROTHIAZIDE [Concomitant]
  18. HYDROCHLOROTHIAZIDE [Concomitant]
  19. AVAPRO [Concomitant]
  20. VITAMIN B1 [Concomitant]
  21. ALLOPURINOL [Concomitant]
  22. FOLIC ACID [Concomitant]
  23. APRO [Concomitant]
  24. EZETIMIBE [Concomitant]
  25. SIMVASTATIN [Concomitant]

REACTIONS (17)
  - ANOREXIA [None]
  - BLOOD CHOLESTEROL DECREASED [None]
  - BLOOD GLUCOSE DECREASED [None]
  - BLOOD GLUCOSE INCREASED [None]
  - CONFUSIONAL STATE [None]
  - DIZZINESS [None]
  - DRUG INEFFECTIVE [None]
  - ERUCTATION [None]
  - FEELING ABNORMAL [None]
  - GASTROOESOPHAGEAL REFLUX DISEASE [None]
  - HYPOGLYCAEMIA [None]
  - INJECTION SITE PAIN [None]
  - NAUSEA [None]
  - THERAPEUTIC RESPONSE UNEXPECTED [None]
  - THROAT IRRITATION [None]
  - VISION BLURRED [None]
  - WEIGHT DECREASED [None]
